FAERS Safety Report 8552890-9 (Version None)
Quarter: 2012Q3

REPORT INFORMATION
  Report Type: 
  Country: None (occurrence: None)
  Receive Date: 20120731
  Receipt Date: 20120720
  Transmission Date: 20120928
  Serious: Yes (Other)
  Sender: FDA-Public Use
  Company Number: US-SANOFI-AVENTIS-2012SA051975

PATIENT
  Sex: Male

DRUGS (2)
  1. PLAVIX [Suspect]
  2. OMEPRAZOLE [Concomitant]

REACTIONS (2)
  - NEOPLASM MALIGNANT [None]
  - HYPOACUSIS [None]
